FAERS Safety Report 7850384-7 (Version None)
Quarter: 2011Q4

REPORT INFORMATION
  Report Type: 
  Country: None (occurrence: None)
  Receive Date: 20111024
  Receipt Date: 20111012
  Transmission Date: 20120403
  Serious: Yes (Hospitalization)
  Sender: FDA-Public Use
  Company Number: 1000024771

PATIENT
  Age: 63 Year
  Sex: Female

DRUGS (7)
  1. NEXIUM [Concomitant]
  2. EFFERALGAN (PARACETAMOL) (PARACETAMOL) [Concomitant]
  3. VOLTARENE (DICLOFENAC SODIUM) (DICLOFENAC SODIUM) [Concomitant]
  4. LEVOTHYROXINE SODIUM [Concomitant]
  5. METEOXANE (PHLOROGLUCINOL HYDRATE, SIMETHICONE) (PHLOROGLUCINOL HYDROA [Concomitant]
  6. NEBIVOLOL HCL [Suspect]
     Indication: HYPERTENSION
     Dosage: 5 MG (5 MG, 1 IN 1 D), ORAL
     Route: 048
     Dates: end: 20110922
  7. JANUMET (METFORMIN, SITAGLIPTIN) (METFORMIN, SITAGLIPTIN) [Concomitant]

REACTIONS (10)
  - MALAISE [None]
  - DIZZINESS [None]
  - PRESYNCOPE [None]
  - PALPITATIONS [None]
  - FATIGUE [None]
  - BLOOD PRESSURE INCREASED [None]
  - ORTHOSTATIC HYPERTENSION [None]
  - HYPERHIDROSIS [None]
  - HEADACHE [None]
  - ORTHOSTATIC HYPOTENSION [None]
